FAERS Safety Report 4381534-5 (Version None)
Quarter: 2004Q2

REPORT INFORMATION
  Report Type: 
  Country: None (occurrence: None)
  Receive Date: 20040621
  Receipt Date: 20030710
  Transmission Date: 20050107
  Serious: Yes (Hospitalization)
  Sender: FDA-Public Use
  Company Number: US-MERCK-0307USA01283

PATIENT
  Age: 52 Year
  Sex: Male
  Weight: 111 kg

DRUGS (6)
  1. ZETIA [Suspect]
     Indication: HYPERCHOLESTEROLAEMIA
     Route: 048
     Dates: start: 20030618, end: 20030708
  2. ZETIA [Suspect]
     Indication: HYPERLIPIDAEMIA
     Route: 048
     Dates: start: 20030618, end: 20030708
  3. ALLEGRA [Concomitant]
     Route: 065
  4. SYNTHROID [Concomitant]
     Route: 065
  5. VIAGRA [Concomitant]
     Route: 065
  6. FLOMAX [Concomitant]
     Route: 065

REACTIONS (7)
  - EPISTAXIS [None]
  - MELANODERMIA [None]
  - MOUTH ULCERATION [None]
  - PLATELET COUNT ABNORMAL [None]
  - PLATELET COUNT DECREASED [None]
  - RASH [None]
  - THROMBOCYTOPENIA [None]
